FAERS Safety Report 25346044 (Version 3)
Quarter: 2025Q4

REPORT INFORMATION
  Report Type: Report from Study
  Country: US (occurrence: US)
  Receive Date: 20250522
  Receipt Date: 20251010
  Transmission Date: 20260117
  Serious: Yes (Hospitalization)
  Sender: ABBVIE
  Company Number: US-ABBVIE-6284265

PATIENT
  Age: 47 Year
  Sex: Male

DRUGS (3)
  1. SKYRIZI [Suspect]
     Active Substance: RISANKIZUMAB-RZAA
     Indication: Crohn^s disease
     Route: 058
     Dates: start: 2025
  2. Dulcolax [Concomitant]
     Indication: Bowel preparation
     Dosage: 2 PILLS FIRST DAY, 2 PILLS FOLLOWING DAY
  3. SKYRIZI [Suspect]
     Active Substance: RISANKIZUMAB-RZAA
     Indication: Crohn^s disease
     Dosage: END DATE: 2025
     Route: 042
     Dates: start: 20250216

REACTIONS (7)
  - Influenza [Recovering/Resolving]
  - Feeling abnormal [Unknown]
  - Haemoptysis [Unknown]
  - Gastroenteritis [Unknown]
  - Pyrexia [Recovering/Resolving]
  - Delirium [Unknown]
  - Arthritis [Recovering/Resolving]

NARRATIVE: CASE EVENT DATE: 20250101
